FAERS Safety Report 5063498-4 (Version None)
Quarter: 2006Q3

REPORT INFORMATION
  Report Type: 
  Country: None (occurrence: None)
  Receive Date: 20060727
  Receipt Date: 20060127
  Transmission Date: 20061208
  Serious: Yes (Disabling)
  Sender: FDA-Public Use
  Company Number: US-ROCHE-434151

PATIENT
  Age: 19 Year
  Sex: Male
  Weight: 140 kg

DRUGS (2)
  1. ACCUTANE [Suspect]
     Indication: ACNE
     Route: 048
     Dates: start: 20030116, end: 20030228
  2. ACCUTANE [Suspect]
     Route: 048
     Dates: start: 20030228

REACTIONS (12)
  - CROHN'S DISEASE [None]
  - DEPRESSION [None]
  - DYSPEPSIA [None]
  - EPSTEIN-BARR VIRUS ANTIBODY POSITIVE [None]
  - GASTROINTESTINAL INJURY [None]
  - HAEMATOCHEZIA [None]
  - INFLAMMATORY BOWEL DISEASE [None]
  - PHARYNGITIS [None]
  - PILONIDAL CYST [None]
  - POLYP COLORECTAL [None]
  - ROAD TRAFFIC ACCIDENT [None]
  - TEMPOROMANDIBULAR JOINT SYNDROME [None]
